FAERS Safety Report 4740767-6 (Version None)
Quarter: 2005Q3

REPORT INFORMATION
  Report Type: 
  Country: None (occurrence: None)
  Receive Date: 20050801
  Receipt Date: 20050629
  Transmission Date: 20060218
  Serious: No
  Sender: FDA-Public Use
  Company Number: 2005PV000178

PATIENT
  Age: 67 Year
  Sex: Female
  Weight: 84.8226 kg

DRUGS (11)
  1. BYETTA [Suspect]
     Indication: DIABETES MELLITUS NON-INSULIN-DEPENDENT
     Dosage: 5 UG;BID;SC
     Route: 058
     Dates: start: 20050627
  2. GLUCOPHAGE [Concomitant]
  3. ACTOS [Concomitant]
  4. LEVOTHYROXINE [Concomitant]
  5. DIOVAN [Concomitant]
  6. WELLBUTRIN SR [Concomitant]
  7. MOBIC [Concomitant]
  8. ARIMIDEX [Concomitant]
  9. GABAPENTIN [Concomitant]
  10. METHADONE HCL [Concomitant]
  11. ENDOCET [Concomitant]

REACTIONS (3)
  - DECREASED APPETITE [None]
  - NAUSEA [None]
  - VOMITING [None]
